FAERS Safety Report 16841868 (Version 1)
Quarter: 2019Q3

REPORT INFORMATION
  Report Type: Spontaneous
  Country: DE (occurrence: DE)
  Receive Date: 20190923
  Receipt Date: 20190923
  Transmission Date: 20191005
  Serious: Yes (Other)
  Sender: FDA-Public Use
  Company Number: DE-ELI_LILLY_AND_COMPANY-DE201909007018

PATIENT
  Age: 84 Year
  Sex: Female

DRUGS (11)
  1. HUMINSULIN REGULAR [Suspect]
     Active Substance: INSULIN HUMAN
     Dosage: 12 U, EACH EVENING
     Route: 058
  2. HUMINSULIN REGULAR [Suspect]
     Active Substance: INSULIN HUMAN
     Indication: TYPE 2 DIABETES MELLITUS
     Dosage: 8 U, EACH MORNING
     Route: 058
  3. HUMINSULIN REGULAR [Suspect]
     Active Substance: INSULIN HUMAN
     Dosage: 4 U, EACH MORNING
     Route: 058
  4. INSULIN GLARGINE [Concomitant]
     Active Substance: INSULIN GLARGINE
     Dosage: 16 INTERNATIONAL UNIT, EACH EVENING
  5. METFORMIN METFORMIN HYDROCHLORIDE [Concomitant]
     Dosage: 500 MG, BID
  6. HUMINSULIN REGULAR [Suspect]
     Active Substance: INSULIN HUMAN
     Dosage: 6 U, DAILY (NOON)
     Route: 058
  7. INSULIN GLARGINE [Concomitant]
     Active Substance: INSULIN GLARGINE
     Dosage: 14 INTERNATIONAL UNIT, EACH EVENING
  8. HUMINSULIN REGULAR [Suspect]
     Active Substance: INSULIN HUMAN
     Dosage: 12 U, EACH EVENING
     Route: 058
  9. EMPAGLIFLOZIN [Concomitant]
     Active Substance: EMPAGLIFLOZIN
     Dosage: 10 MG, UNKNOWN
  10. HUMINSULIN REGULAR [Suspect]
     Active Substance: INSULIN HUMAN
     Dosage: 6 U, DAILY (NOON)
     Route: 058
  11. METFORMIN METFORMIN HYDROCHLORIDE [Concomitant]
     Dosage: 500 MG, (EVERY TWO DAY)

REACTIONS (4)
  - Dementia [Unknown]
  - Hypoglycaemia [Unknown]
  - Hyperglycaemia [Unknown]
  - Glycosylated haemoglobin increased [Unknown]
